FAERS Safety Report 9994824 (Version 2)
Quarter: 2014Q1

REPORT INFORMATION
  Report Type: Spontaneous
  Country: US (occurrence: None)
  Receive Date: 20140306
  Receipt Date: 20140327
  Transmission Date: 20141002
  Serious: Yes (Hospitalization)
  Sender: FDA-Public Use
  Company Number: AUR-APL-2014-02441

PATIENT
  Age: 31 Year
  Sex: Female

DRUGS (4)
  1. LISINOPRIL [Suspect]
     Indication: HYPERTENSION
  2. LOSARTAN [Suspect]
     Indication: HYPERTENSION
  3. NIFEDIPINE (NIFEDIPINE) [Concomitant]
  4. CLONIDINE (CLONIDINE) [Concomitant]

REACTIONS (4)
  - Abdominal pain upper [None]
  - Tenderness [None]
  - Cough [None]
  - Small bowel angioedema [None]
